FAERS Safety Report 23165050 (Version 1)
Quarter: 2023Q4

REPORT INFORMATION
  Report Type: Spontaneous
  Country: US (occurrence: None)
  Receive Date: 20231108
  Receipt Date: 20231108
  Transmission Date: 20240110
  Serious: Yes (Death)
  Sender: FDA-Public Use
  Company Number: None

PATIENT
  Age: 63 Year
  Sex: Female
  Weight: 121.8 kg

DRUGS (17)
  1. FULVESTRANT [Suspect]
     Active Substance: FULVESTRANT
     Indication: Breast cancer female
     Dosage: FREQUENCY : ONCE;?
     Route: 030
     Dates: start: 20231027, end: 20231027
  2. Acetaminophen 650 mg PO PRN pain [Concomitant]
  3. Albuterol HFA BID [Concomitant]
  4. Apixaban 2.5 mg PO BID [Concomitant]
  5. Atorvastatin 40 mg PO daily [Concomitant]
  6. Carvedilol 25 mg PO BID [Concomitant]
  7. CLOPIDOGREL [Concomitant]
     Active Substance: CLOPIDOGREL BISULFATE
  8. Dulaglutide 1.5 mg SubQ Weekly [Concomitant]
  9. Escitalopram 20 mg PO daily [Concomitant]
  10. Ferrous sulfate 325 mg PO daily [Concomitant]
  11. Furosemide 20 mg PO daily [Concomitant]
  12. Hydralazine 10 mg PO TID [Concomitant]
  13. Letrozole 2.5 mg PO daily [Concomitant]
  14. Losartan 100 mg PO daily [Concomitant]
  15. Oxycodone-acetaminophen 10-325 mg PO Q6H PRN pain [Concomitant]
  16. Miralax 17 g PO BID [Concomitant]
  17. Senna 30 mg PO daily [Concomitant]

REACTIONS (3)
  - Unresponsive to stimuli [None]
  - Dyspnoea [None]
  - Cardiac arrest [None]

NARRATIVE: CASE EVENT DATE: 20231027
